FAERS Safety Report 10493275 (Version 1)
Quarter: 2014Q4

REPORT INFORMATION
  Report Type: Spontaneous
  Country: US (occurrence: US)
  Receive Date: 20141002
  Receipt Date: 20141002
  Transmission Date: 20150528
  Serious: No
  Sender: FDA-Public Use
  Company Number: US-GLAXOSMITHKLINE-A1081943A

PATIENT
  Age: 47 Year
  Sex: Female

DRUGS (4)
  1. BABY ASPIRIN [Concomitant]
     Active Substance: ASPIRIN
  2. PRENATAL VITAMINS [Concomitant]
     Active Substance: VITAMINS
  3. ADVAIR HFA [Suspect]
     Active Substance: FLUTICASONE PROPIONATE\SALMETEROL XINAFOATE
     Indication: DYSPNOEA
     Dosage: 3PUFF SINGLE DOSE
     Route: 055
     Dates: start: 20140718
  4. METOPROLOL [Concomitant]
     Active Substance: METOPROLOL

REACTIONS (3)
  - Productive cough [Recovering/Resolving]
  - Device misuse [Unknown]
  - Overdose [Unknown]

NARRATIVE: CASE EVENT DATE: 20140718
